FAERS Safety Report 25189805 (Version 2)
Quarter: 2025Q2

REPORT INFORMATION
  Report Type: Spontaneous
  Country: US (occurrence: US)
  Receive Date: 20250411
  Receipt Date: 20250423
  Transmission Date: 20250717
  Serious: No
  Sender: DAIICHI
  Company Number: US-DAIICHI SANKYO, INC.-DS-2025-135115-USAA

PATIENT
  Sex: Female

DRUGS (1)
  1. ENHERTU [Suspect]
     Active Substance: FAM-TRASTUZUMAB DERUXTECAN-NXKI
     Indication: Non-small cell lung cancer metastatic
     Route: 065

REACTIONS (6)
  - Malaise [Unknown]
  - Pneumonia [Unknown]
  - Nausea [Unknown]
  - Diarrhoea [Unknown]
  - Pneumonitis [Unknown]
  - Off label use [Unknown]
